FAERS Safety Report 7895465-7 (Version None)
Quarter: 2011Q4

REPORT INFORMATION
  Report Type: 
  Country: None (occurrence: None)
  Receive Date: 20111106
  Receipt Date: 20110828
  Transmission Date: 20120403
  Serious: Yes (Hospitalization)
  Sender: FDA-Public Use
  Company Number: US-AMGEN-USASP2011036326

PATIENT
  Age: 66 Year
  Sex: Female

DRUGS (2)
  1. ENBREL [Suspect]
     Indication: RHEUMATOID ARTHRITIS
     Dosage: 50 MG, QWK
     Dates: start: 20071101
  2. TREXALL [Concomitant]
     Dosage: 6 MG, QWK
     Dates: start: 20071101

REACTIONS (4)
  - MOBILITY DECREASED [None]
  - DIZZINESS [None]
  - ASTHENIA [None]
  - URINARY TRACT INFECTION [None]
